FAERS Safety Report 22378237 (Version 2)
Quarter: 2023Q2

REPORT INFORMATION
  Report Type: Spontaneous
  Country: KR (occurrence: KR)
  Receive Date: 20230529
  Receipt Date: 20230602
  Transmission Date: 20230722
  Serious: Yes (Hospitalization)
  Sender: FDA-Public Use
  Company Number: KR-BAXTER-2023BAX022526

PATIENT
  Sex: Female

DRUGS (4)
  1. CYCLOPHOSPHAMIDE [Suspect]
     Active Substance: CYCLOPHOSPHAMIDE
     Indication: Triple negative breast cancer
     Dosage: UNK, THIRD CYCLE, AS A PART OF AC REGIMEN
     Route: 065
  2. CYCLOPHOSPHAMIDE [Suspect]
     Active Substance: CYCLOPHOSPHAMIDE
     Dosage: UNK, FOURTH CYCLE, AS A PART OF AC REGIMEN, START DATE: SEP-2021, END DATE: DEC-2021
     Route: 065
  3. ADRIAMYCIN [Suspect]
     Active Substance: DOXORUBICIN HYDROCHLORIDE
     Indication: Triple negative breast cancer
     Dosage: UNK, THIRD CYCLE
     Route: 065
  4. ADRIAMYCIN [Suspect]
     Active Substance: DOXORUBICIN HYDROCHLORIDE
     Dosage: UNK, FOURTH CYCLE, AS A PART OF AC REGIMEN, START DATE: SEP-2021, END DATE: DEC-2021
     Route: 065

REACTIONS (21)
  - Gastrointestinal disorder [Unknown]
  - Nausea [Unknown]
  - Vomiting [Unknown]
  - Stomatitis [Unknown]
  - Decreased appetite [Unknown]
  - Diarrhoea [Unknown]
  - Constipation [Unknown]
  - Cardiotoxicity [Unknown]
  - Bladder disorder [Unknown]
  - Depression [Unknown]
  - Feeding disorder [Unknown]
  - Neutrophil count decreased [Unknown]
  - Platelet count decreased [Unknown]
  - Palmar-plantar erythrodysaesthesia syndrome [Unknown]
  - Myalgia [Unknown]
  - Hepatotoxicity [Unknown]
  - Asthenia [Unknown]
  - Anaemia [Unknown]
  - Alopecia [Unknown]
  - Tremor [Unknown]
  - Pain [Unknown]
